FAERS Safety Report 17917141 (Version 4)
Quarter: 2020Q3

REPORT INFORMATION
  Report Type: Spontaneous
  Country: BR (occurrence: BR)
  Receive Date: 20200619
  Receipt Date: 20200902
  Transmission Date: 20201103
  Serious: Yes (Hospitalization, Other)
  Sender: FDA-Public Use
  Company Number: BR-BIOGEN-2020BI00887181

PATIENT
  Age: 22 Year
  Sex: Male

DRUGS (5)
  1. AVONEX PEN [Suspect]
     Active Substance: INTERFERON BETA-1A
  2. AVONEX PEN [Suspect]
     Active Substance: INTERFERON BETA-1A
  3. AVONEX PEN [Suspect]
     Active Substance: INTERFERON BETA-1A
     Indication: MULTIPLE SCLEROSIS
     Route: 030
     Dates: start: 20200512, end: 20200608
  4. VITAMIN D [Concomitant]
     Active Substance: VITAMIN D NOS
     Indication: MULTIPLE SCLEROSIS
     Route: 065
  5. AVONEX PEN [Suspect]
     Active Substance: INTERFERON BETA-1A

REACTIONS (3)
  - Aspartate aminotransferase abnormal [Recovered/Resolved]
  - Multiple sclerosis relapse [Not Recovered/Not Resolved]
  - Alanine aminotransferase abnormal [Not Recovered/Not Resolved]

NARRATIVE: CASE EVENT DATE: 202005
